FAERS Safety Report 4689154-X (Version None)
Quarter: 2005Q2

REPORT INFORMATION
  Report Type: 
  Country: None (occurrence: None)
  Receive Date: 20050608
  Receipt Date: 20050224
  Transmission Date: 20051028
  Serious: No
  Sender: FDA-Public Use
  Company Number: 2005-BP-03082BP

PATIENT
  Age: 78 Year
  Sex: Male

DRUGS (3)
  1. SPIRIVA [Suspect]
     Indication: CHRONIC OBSTRUCTIVE PULMONARY DISEASE
     Dosage: 18 MCG (18 MCG, OD), IH
     Route: 055
     Dates: start: 20041001, end: 20050201
  2. TOPROL (METOPROLOL SUCCINATE) [Concomitant]
  3. PRAZOSIN GITS [Concomitant]

REACTIONS (2)
  - ARTHRITIS [None]
  - JOINT SWELLING [None]
